FAERS Safety Report 19300287 (Version 1)
Quarter: 2021Q2

REPORT INFORMATION
  Report Type: Spontaneous
  Country: US (occurrence: US)
  Receive Date: 20210525
  Receipt Date: 20210525
  Transmission Date: 20210717
  Serious: Yes (Disabling, Other)
  Sender: FDA-Public Use
  Company Number: None

PATIENT
  Age: 35 Year
  Sex: Female
  Weight: 56.25 kg

DRUGS (9)
  1. CURCUMINOID [Concomitant]
  2. CYCLOBENZOPRINE [Concomitant]
     Active Substance: CYCLOBENZAPRINE
  3. CANNABINOID [Concomitant]
  4. METHADONE [Concomitant]
     Active Substance: METHADONE HYDROCHLORIDE
  5. ATENOLOL. [Concomitant]
     Active Substance: ATENOLOL
  6. VENLAFAXINE [Suspect]
     Active Substance: VENLAFAXINE HYDROCHLORIDE
     Indication: DEPRESSION
     Dosage: ?          QUANTITY:30 CAPSULE(S);?
     Route: 048
     Dates: start: 20020801
  7. VENLAFAXINE [Concomitant]
     Active Substance: VENLAFAXINE HYDROCHLORIDE
  8. LIDOCAINE PATCHES [Concomitant]
     Active Substance: LIDOCAINE
  9. BACLOFEN. [Concomitant]
     Active Substance: BACLOFEN

REACTIONS (2)
  - Bone loss [None]
  - Osteoporosis [None]

NARRATIVE: CASE EVENT DATE: 20210319
